FAERS Safety Report 19073752 (Version 4)
Quarter: 2021Q2

REPORT INFORMATION
  Report Type: Report from Study
  Country: US (occurrence: US)
  Receive Date: 20210330
  Receipt Date: 20210603
  Transmission Date: 20210717
  Serious: Yes (Hospitalization)
  Sender: FDA-Public Use
  Company Number: US-ROCHE-2794290

PATIENT
  Age: 75 Year
  Sex: Male
  Weight: 76.1 kg

DRUGS (4)
  1. ATEZOLIZUMAB. [Suspect]
     Active Substance: ATEZOLIZUMAB
     Indication: NON-SMALL CELL LUNG CANCER
     Dosage: DATE OF LAST DOSE OF ATEZOLIZUMAB PRIOR TO AE ONSET: 08/MAR/2021
     Route: 042
     Dates: start: 20200406
  2. CARBOPLATIN. [Suspect]
     Active Substance: CARBOPLATIN
     Indication: NON-SMALL CELL LUNG CANCER
     Dosage: FOR 4 CYCLES?DATE OF LAST DOSE OF CARBOPLATIN PRIOR TO AE ONSET: 08/JUN/2020
     Route: 042
     Dates: start: 20200406
  3. BEVACIZUMAB. [Suspect]
     Active Substance: BEVACIZUMAB
     Indication: NON-SMALL CELL LUNG CANCER
     Dosage: DATE OF LAST DOSE OF BEVACIZUMAB PRIOR TO AE ONSET: 08/MAR/2021
     Route: 042
     Dates: start: 20200406
  4. PEMETREXED. [Suspect]
     Active Substance: PEMETREXED
     Indication: NON-SMALL CELL LUNG CANCER
     Dosage: DATE OF LAST DOSE OF PEMETREXED PRIOR TO AE ONSET: 08/MAR/2021
     Route: 042
     Dates: start: 20200406

REACTIONS (1)
  - Confusional state [Recovered/Resolved]

NARRATIVE: CASE EVENT DATE: 20210316
